FAERS Safety Report 9536729 (Version 1)
Quarter: 2013Q3

REPORT INFORMATION
  Report Type: Spontaneous
  Country: US (occurrence: None)
  Receive Date: 20130918
  Receipt Date: 20130918
  Transmission Date: 20140515
  Serious: Yes (Hospitalization)
  Sender: FDA-Public Use
  Company Number: None

PATIENT
  Age: 53 Year
  Sex: Female
  Weight: 55 kg

DRUGS (2)
  1. PRAZOSIN [Suspect]
     Indication: NIGHTMARE
     Route: 048
     Dates: start: 20130829, end: 20130829
  2. LISINOPRIL [Suspect]
     Indication: HYPERTENSION
     Route: 048
     Dates: start: 20130719

REACTIONS (4)
  - Hypotension [None]
  - Nausea [None]
  - Dizziness [None]
  - Dizziness [None]
